FAERS Safety Report 6544759-6 (Version None)
Quarter: 2010Q1

REPORT INFORMATION
  Report Type: 
  Country: None (occurrence: None)
  Receive Date: 20100121
  Receipt Date: 20100118
  Transmission Date: 20100710
  Serious: Yes (Hospitalization)
  Sender: FDA-Public Use
  Company Number: DE-BRISTOL-MYERS SQUIBB COMPANY-14845713

PATIENT
  Age: 40 Year
  Sex: Female

DRUGS (5)
  1. CISPLATIN [Suspect]
     Indication: NON-SMALL CELL LUNG CANCER
     Dosage: DURATION:1 DAY C1:06MAY09 C2:03JUN09 C3:24JUN09 C4:LAST DOSE:22JUL09.
     Route: 042
     Dates: start: 20090506, end: 20090722
  2. ALIMTA [Suspect]
     Indication: NON-SMALL CELL LUNG CANCER
     Dosage: DURATION:1 DAY C1:06MAY09 C2:03JUN09 C3:24JUN09 C4:LAST DOSE:22JUL09.
     Route: 042
     Dates: start: 20090506, end: 20090722
  3. FOLIC ACID [Concomitant]
     Indication: PROPHYLAXIS
     Dates: start: 20090501
  4. VITAMIN B-12 [Concomitant]
     Indication: PROPHYLAXIS
     Dates: start: 20090721, end: 20090721
  5. DEXAMETHASONE [Concomitant]
     Indication: PROPHYLAXIS
     Dates: start: 20090721, end: 20090723

REACTIONS (1)
  - ANAEMIA [None]
